FAERS Safety Report 23863501 (Version 1)
Quarter: 2024Q2

REPORT INFORMATION
  Report Type: Spontaneous
  Country: US (occurrence: None)
  Receive Date: 20240515
  Receipt Date: 20240515
  Transmission Date: 20240716
  Serious: Yes (Disabling, Other)
  Sender: FDA-Public Use
  Company Number: None

PATIENT
  Age: 88 Year
  Sex: Female
  Weight: 68.04 kg

DRUGS (10)
  1. PANTOPRAZOLE SODIUM [Suspect]
     Active Substance: PANTOPRAZOLE SODIUM
     Indication: Gastrooesophageal reflux disease
     Dosage: FREQUENCY : DAILY;?
     Route: 048
     Dates: start: 20240221, end: 20240227
  2. LEVOTHYROXINE [Concomitant]
     Active Substance: LEVOTHYROXINE\LEVOTHYROXINE SODIUM
  3. VITAMINS [Concomitant]
     Active Substance: VITAMINS
  4. Extra Calcium + Magnesium [Concomitant]
  5. C [Concomitant]
  6. Prevegin [Concomitant]
  7. GARLIQUE [Concomitant]
     Active Substance: GARLIC
  8. IC Vitamin D2 [Concomitant]
  9. ASPIRIN [Concomitant]
     Active Substance: ASPIRIN
  10. ATORVASTATIN [Suspect]
     Active Substance: ATORVASTATIN

REACTIONS (10)
  - Burning sensation mucosal [None]
  - Hypoaesthesia oral [None]
  - Lip dry [None]
  - Dizziness [None]
  - Balance disorder [None]
  - Lip swelling [None]
  - Drooling [None]
  - Taste disorder [None]
  - Eyelid margin crusting [None]
  - Neuropathy peripheral [None]

NARRATIVE: CASE EVENT DATE: 20240226
